FAERS Safety Report 20661681 (Version 4)
Quarter: 2022Q2

REPORT INFORMATION
  Report Type: Report from Study
  Country: BR (occurrence: BR)
  Receive Date: 20220401
  Receipt Date: 20220512
  Transmission Date: 20220720
  Serious: Yes (Hospitalization)
  Sender: FDA-Public Use
  Company Number: BR-JNJFOC-20220323698

PATIENT
  Age: 64 Year
  Sex: Male
  Weight: 86 kg

DRUGS (5)
  1. SIMPONI [Suspect]
     Active Substance: GOLIMUMAB
     Indication: Psoriatic arthropathy
     Dosage: 50MG 0.0ML
     Route: 058
     Dates: start: 20220210
  2. SIMPONI [Suspect]
     Active Substance: GOLIMUMAB
     Route: 058
     Dates: start: 20220210, end: 20220210
  3. SIMVASTATIN [Concomitant]
     Active Substance: SIMVASTATIN
  4. PREDNISONE [Concomitant]
     Active Substance: PREDNISONE
  5. OMEPRAZOLE [Concomitant]
     Active Substance: OMEPRAZOLE

REACTIONS (3)
  - Diverticulitis intestinal perforated [Recovering/Resolving]
  - Immune system disorder [Unknown]
  - Weight decreased [Unknown]

NARRATIVE: CASE EVENT DATE: 20220309
